FAERS Safety Report 15065129 (Version 1)
Quarter: 2018Q2

REPORT INFORMATION
  Report Type: Spontaneous
  Country: US (occurrence: US)
  Receive Date: 20180626
  Receipt Date: 20180626
  Transmission Date: 20180711
  Serious: No
  Sender: FDA-Public Use
  Company Number: US-BLUE EARTH DIAGNOSTICS LIMITED-BED-000004-2018

PATIENT
  Age: 69 Year
  Sex: Male

DRUGS (3)
  1. AXUMIN [Suspect]
     Active Substance: FLUCICLOVINE F-18
     Indication: PROSTATE CANCER
     Dosage: UNK
     Route: 065
     Dates: start: 20180123
  2. RAPFLO [Concomitant]
     Indication: PROSTATE CANCER
     Dosage: UNK
     Route: 065
  3. LUPRON [Concomitant]
     Active Substance: LEUPROLIDE ACETATE
     Indication: PRODUCT USED FOR UNKNOWN INDICATION
     Dosage: UNK
     Route: 065

REACTIONS (1)
  - Dysgeusia [Not Recovered/Not Resolved]
